FAERS Safety Report 10913941 (Version 1)
Quarter: 2015Q1

REPORT INFORMATION
  Report Type: Spontaneous
  Country: GB (occurrence: None)
  Receive Date: 20150310
  Receipt Date: 20150310
  Transmission Date: 20150721
  Serious: Yes (Hospitalization)
  Sender: FDA-Public Use
  Company Number: GB-20150005

PATIENT
  Age: 35 Year
  Sex: Male

DRUGS (1)
  1. DOTAREM [Suspect]
     Active Substance: GADOTERATE MEGLUMINE
     Indication: NUCLEAR MAGNETIC RESONANCE IMAGING
     Dosage: NOT OTHERWISE SPECIFIED
     Route: 042
     Dates: start: 20150128, end: 20150128

REACTIONS (4)
  - Loss of consciousness [None]
  - Neck pain [None]
  - Dizziness [None]
  - Incontinence [None]

NARRATIVE: CASE EVENT DATE: 20150128
